FAERS Safety Report 12630834 (Version 1)
Quarter: 2016Q3

REPORT INFORMATION
  Report Type: Spontaneous
  Country: JP (occurrence: JP)
  Receive Date: 20160808
  Receipt Date: 20160808
  Transmission Date: 20161109
  Serious: Yes (Other)
  Sender: FDA-Public Use
  Company Number: JP-BAYER-2016-146637

PATIENT
  Sex: Female
  Weight: 1.03 kg

DRUGS (2)
  1. BAYASPIRIN [Suspect]
     Active Substance: ASPIRIN
     Dosage: UNK
     Route: 064
  2. BAYASPIRIN [Suspect]
     Active Substance: ASPIRIN
     Dosage: UNK
     Route: 064

REACTIONS (5)
  - Apgar score low [Recovered/Resolved]
  - Bradycardia foetal [None]
  - Low birth weight baby [None]
  - Foetal exposure timing unspecified [Recovered/Resolved]
  - Premature baby [None]
